FAERS Safety Report 10516059 (Version 1)
Quarter: 2014Q4

REPORT INFORMATION
  Report Type: Spontaneous
  Country: US (occurrence: None)
  Receive Date: 20141002
  Receipt Date: 20141002
  Transmission Date: 20150528
  Serious: Yes (Other)
  Sender: FDA-Public Use
  Company Number: 2013SCPR007756

PATIENT
  Age: 8 Year
  Sex: Male

DRUGS (3)
  1. EPILIM [Concomitant]
     Active Substance: VALPROATE SODIUM
  2. GLYCOPYRROLATE. [Suspect]
     Active Substance: GLYCOPYRROLATE
     Indication: DROOLING
     Dosage: 2 MG, QD IN THE MORNING, UNKNOWN
     Dates: start: 20131027, end: 20131029
  3. CIRCADIN (MELATONIN) [Concomitant]

REACTIONS (2)
  - Hypersensitivity [None]
  - Rash pruritic [None]

NARRATIVE: CASE EVENT DATE: 201310
